FAERS Safety Report 24579105 (Version 1)
Quarter: 2024Q4

REPORT INFORMATION
  Report Type: Spontaneous
  Country: US (occurrence: US)
  Receive Date: 20241105
  Receipt Date: 20241105
  Transmission Date: 20250115
  Serious: Yes (Other)
  Sender: AUROBINDO
  Company Number: US-AUROBINDO-AUR-APL-2024-053378

PATIENT
  Age: 16 Year
  Sex: Female

DRUGS (2)
  1. MILRINONE LACTATE [Suspect]
     Active Substance: MILRINONE LACTATE
     Indication: Cardiac failure
     Dosage: 0.3 MICROGRAM/KILOGRAM/MIN
     Route: 065
  2. SODIUM NITROPRUSSIDE [Suspect]
     Active Substance: SODIUM NITROPRUSSIDE
     Indication: Cardiac failure
     Dosage: 0.7 MICROGRAM/KILOGRAM/MIN
     Route: 065

REACTIONS (1)
  - Drug ineffective [Unknown]
